FAERS Safety Report 9161579 (Version 1)
Quarter: 2012Q4

REPORT INFORMATION
  Report Type: 
  Country: US (occurrence: US)
  Receive Date: 20121220
  Receipt Date: 20121220
  Transmission Date: 20130627
  Serious: Yes (Other)
  Sender: FDA-Public Use
  Company Number: US-RB-047923-12

PATIENT
  Age: 0 None
  Sex: Male

DRUGS (4)
  1. SUBOXONE TABLET [Suspect]
     Indication: DRUG DEPENDENCE
     Route: 064
     Dates: start: 201109, end: 2012
  2. SUBUTEX [Suspect]
     Indication: DRUG DEPENDENCE
     Route: 064
     Dates: start: 2012, end: 20120628
  3. XANAX [Suspect]
     Indication: ANXIETY
     Dosage: 3-4 mg/daily
     Route: 064
     Dates: start: 201109, end: 20120628
  4. NICOTINE [Suspect]
     Indication: TOBACCO USER
     Dosage: 2 cigarettes per day
     Route: 064
     Dates: start: 201109, end: 20120628

REACTIONS (4)
  - Failure to thrive [Unknown]
  - Drug withdrawal syndrome neonatal [Recovered/Resolved]
  - Crying [Recovered/Resolved]
  - Foetal exposure during pregnancy [Recovered/Resolved]
